FAERS Safety Report 5057152-2 (Version None)
Quarter: 2006Q2

REPORT INFORMATION
  Report Type: 
  Country: None (occurrence: None)
  Receive Date: 20060622
  Receipt Date: 20050909
  Transmission Date: 20061013
  Serious: Yes (Other)
  Sender: FDA-Public Use
  Company Number: US-JNJFOC-20050903220

PATIENT
  Age: 55 Year
  Sex: Female

DRUGS (3)
  1. FENTANYL [Suspect]
     Indication: PAIN
     Dosage: SEE IMAGE
     Dates: start: 20040801, end: 20050301
  2. FENTANYL [Suspect]
     Indication: PAIN
     Dosage: SEE IMAGE
     Dates: start: 20050301
  3. ROXICET [Suspect]
     Dosage: 5 MG OXYCODONE AND 325 MG ACETAMINOPHEN/ 4 TO 6 TABLETS DAILY, AS NECESSARY

REACTIONS (1)
  - WEIGHT DECREASED [None]
